FAERS Safety Report 13495741 (Version 1)
Quarter: 2017Q2

REPORT INFORMATION
  Report Type: Report from Study
  Country: DE (occurrence: DE)
  Receive Date: 20170428
  Receipt Date: 20170428
  Transmission Date: 20170830
  Serious: Yes (Other)
  Sender: FDA-Public Use
  Company Number: DE-HTU-2017DE013095

PATIENT
  Age: 69 Year
  Sex: Female
  Weight: 54 kg

DRUGS (11)
  1. EPIRUBICIN [Concomitant]
     Active Substance: EPIRUBICIN
     Dosage: UNK, CYCLE 2 OF 4
     Dates: start: 20170213, end: 20170213
  2. DEXAMETHASONE. [Concomitant]
     Active Substance: DEXAMETHASONE
     Dosage: 8 MG, SINGLE
     Dates: start: 20170123, end: 20170123
  3. EPIRUBICIN [Concomitant]
     Active Substance: EPIRUBICIN
     Indication: BREAST CANCER
     Dosage: UNK, CYCLE 1 OF 4
     Dates: start: 20170123, end: 20170123
  4. CYCLOPHOSPHAMIDE. [Concomitant]
     Active Substance: CYCLOPHOSPHAMIDE
     Indication: BREAST CANCER
     Dosage: UNK, CYCLE 1 OF 4
     Dates: start: 20170123, end: 20170123
  5. AKYNZEO [Suspect]
     Active Substance: NETUPITANT\PALONOSETRON HYDROCHLORIDE
     Dosage: 1 DF, SINGLE
     Route: 048
     Dates: start: 20170213, end: 20170213
  6. AKYNZEO [Suspect]
     Active Substance: NETUPITANT\PALONOSETRON HYDROCHLORIDE
     Dosage: 1 DF, SINGLE
     Route: 048
     Dates: start: 20170306, end: 20170306
  7. EPIRUBICIN [Concomitant]
     Active Substance: EPIRUBICIN
     Dosage: UNK, CYCLE 3 OF 4
     Dates: start: 20170306, end: 20170306
  8. CYCLOPHOSPHAMIDE. [Concomitant]
     Active Substance: CYCLOPHOSPHAMIDE
     Dosage: UNK, CYCLE 2 OF 4
     Dates: start: 20170213, end: 20170213
  9. CYCLOPHOSPHAMIDE. [Concomitant]
     Active Substance: CYCLOPHOSPHAMIDE
     Dosage: UNK, CYCLE 3 OF 4
     Dates: start: 20170306, end: 20170306
  10. AKYNZEO [Suspect]
     Active Substance: NETUPITANT\PALONOSETRON HYDROCHLORIDE
     Indication: PROPHYLAXIS OF NAUSEA AND VOMITING
     Dosage: 1 DF, SINGLE
     Route: 048
     Dates: start: 20170123, end: 20170123
  11. DEXAMETHASONE. [Concomitant]
     Active Substance: DEXAMETHASONE
     Dosage: 8 MG, SINGLE
     Dates: start: 20170306, end: 20170306

REACTIONS (1)
  - White blood cell count decreased [Recovered/Resolved]

NARRATIVE: CASE EVENT DATE: 20170315
